FAERS Safety Report 18525130 (Version 2)
Quarter: 2020Q4

REPORT INFORMATION
  Report Type: Report from Study
  Country: US (occurrence: US)
  Receive Date: 20201120
  Receipt Date: 20201209
  Transmission Date: 20210114
  Serious: Yes (Death, Hospitalization)
  Sender: FDA-Public Use
  Company Number: US-SA-2020SA329233

PATIENT

DRUGS (1)
  1. AGALSIDASE BETA [Suspect]
     Active Substance: AGALSIDASE BETA
     Indication: FABRY^S DISEASE
     Dosage: 90 MG, QOW
     Route: 042
     Dates: start: 20041013

REACTIONS (6)
  - COVID-19 [Fatal]
  - Decreased appetite [Recovering/Resolving]
  - SARS-CoV-2 test positive [Fatal]
  - Dehydration [Recovering/Resolving]
  - Fall [Recovering/Resolving]
  - Confusional state [Recovering/Resolving]

NARRATIVE: CASE EVENT DATE: 2020
